FAERS Safety Report 10156339 (Version 1)
Quarter: 2014Q2

REPORT INFORMATION
  Report Type: Spontaneous
  Country: GB (occurrence: GB)
  Receive Date: 20140507
  Receipt Date: 20140507
  Transmission Date: 20141212
  Serious: Yes (Hospitalization)
  Sender: FDA-Public Use
  Company Number: GB-009507513-1405GBR003502

PATIENT
  Age: 80 Year
  Sex: Female

DRUGS (14)
  1. ALENDRONATE SODIUM [Suspect]
     Indication: PROPHYLAXIS
     Dosage: STARTED 18 MONTHS AGO.
     Route: 048
     Dates: start: 2012, end: 20140416
  2. ATORVASTATIN [Concomitant]
  3. AZATHIOPRINE [Concomitant]
  4. BETAMETHASONE [Concomitant]
     Route: 061
  5. CODEINE [Concomitant]
  6. FUROSEMIDE [Concomitant]
  7. IRBESARTAN [Concomitant]
  8. NIFEDIPINE [Concomitant]
  9. OMEPRAZOLE [Concomitant]
  10. PREDNISOLONE [Concomitant]
  11. QVAR [Concomitant]
  12. ALBUTEROL [Concomitant]
  13. WARFARIN [Concomitant]
  14. NEOMYCIN [Concomitant]
     Route: 061

REACTIONS (1)
  - Atypical fracture [Recovering/Resolving]
